FAERS Safety Report 7885251-6 (Version None)
Quarter: 2011Q4

REPORT INFORMATION
  Report Type: 
  Country: None (occurrence: None)
  Receive Date: 20111102
  Receipt Date: 20111101
  Transmission Date: 20120403
  Serious: Yes (Other)
  Sender: FDA-Public Use
  Company Number: TR-PFIZER INC-2011266666

PATIENT
  Age: 54 Year
  Sex: Female

DRUGS (3)
  1. REMERON [Concomitant]
     Dosage: UNK
  2. NEURONTIN [Suspect]
     Indication: PAIN IN EXTREMITY
     Dosage: 600 MG, ONCE IN THE FIRST DAY, TWICE IN THE SECOND DAY, THREE TIMES IN THE THIRD DAY
  3. AMITRIPTYLINE HCL [Concomitant]
     Dosage: 10 UNK, UNK

REACTIONS (4)
  - PULMONARY MASS [None]
  - SOMNOLENCE [None]
  - ASTHENIA [None]
  - FATIGUE [None]
